FAERS Safety Report 4778504-1 (Version None)
Quarter: 2005Q3

REPORT INFORMATION
  Report Type: 
  Country: None (occurrence: None)
  Receive Date: 20050922
  Receipt Date: 20050912
  Transmission Date: 20060218
  Serious: Yes (Other)
  Sender: FDA-Public Use
  Company Number: 2005127297

PATIENT
  Sex: Female
  Weight: 91.173 kg

DRUGS (3)
  1. NORVASC [Suspect]
     Indication: HYPERTENSION
     Dosage: 10 MG (10 MG DAILY INTERVAL: EVERY DAY) ORAL
     Route: 048
  2. LIPITOR [Suspect]
     Indication: BLOOD CHOLESTEROL INCREASED
     Dosage: 10 MG (10 MG DAILY INTERVAL: EVERY DAY ) ORAL
     Route: 048
     Dates: start: 20050101
  3. ASPIRIN [Concomitant]

REACTIONS (8)
  - BLOOD CHOLESTEROL INCREASED [None]
  - CORRECTIVE LENS USER [None]
  - DIABETES MELLITUS [None]
  - FURUNCLE [None]
  - GOUT [None]
  - HEADACHE [None]
  - INFECTION [None]
  - VISION BLURRED [None]
